FAERS Safety Report 4531009-5 (Version None)
Quarter: 2004Q4

REPORT INFORMATION
  Report Type: 
  Country: None (occurrence: None)
  Receive Date: 20041213
  Receipt Date: 20041126
  Transmission Date: 20050328
  Serious: Yes (Other)
  Sender: FDA-Public Use
  Company Number: 601656

PATIENT
  Age: 4 Week
  Sex: Male

DRUGS (1)
  1. ADVATE (ANTIHEMOPHILIC FACTOR (RECOMBINANT), PLASMA/ ALBUMIN FREE METH [Suspect]
     Indication: FACTOR VIII DEFICIENCY
     Dates: start: 20040101

REACTIONS (1)
  - INHIBITING ANTIBODIES [None]
